FAERS Safety Report 6418898-4 (Version None)
Quarter: 2009Q4

REPORT INFORMATION
  Report Type: 
  Country: None (occurrence: None)
  Receive Date: 20091028
  Receipt Date: 20091028
  Transmission Date: 20100525
  Serious: No
  Sender: FDA-Public Use
  Company Number: None

PATIENT
  Age: 34 Year
  Sex: Male
  Weight: 105.2345 kg

DRUGS (3)
  1. ZONISAMIDE [Suspect]
     Indication: EPILEPSY
     Dosage: 1 CAP BID ORAL
     Route: 048
  2. ZONISAMIDE [Suspect]
     Indication: PARTIAL SEIZURES
     Dosage: 1 CAP BID ORAL
     Route: 048
  3. TEGRETOL-XR [Concomitant]

REACTIONS (3)
  - CONDITION AGGRAVATED [None]
  - CONVULSION [None]
  - PRODUCT SUBSTITUTION ISSUE [None]
